FAERS Safety Report 11248163 (Version 1)
Quarter: 2015Q2

REPORT INFORMATION
  Report Type: Spontaneous
  Country: US (occurrence: None)
  Receive Date: 20150617
  Receipt Date: 20150617
  Transmission Date: 20150821
  Serious: No
  Sender: FDA-Public Use
  Company Number: 2014TASUS000516

PATIENT
  Age: 65 Year
  Sex: Female

DRUGS (4)
  1. HETLIOZ [Suspect]
     Active Substance: TASIMELTEON
     Indication: CIRCADIAN RHYTHM SLEEP DISORDER
     Dates: start: 20140911
  2. HETLIOZ [Suspect]
     Active Substance: TASIMELTEON
     Indication: BLINDNESS
     Dates: start: 20140911
  3. PRAVASTATIN SODIUM (PRAVASTATIN SODIUM) [Concomitant]
  4. LISINOPRIL (LISINOPRIL DIHYDRATE) (UNKNOWN [Concomitant]
     Active Substance: LISINOPRIL

REACTIONS (1)
  - Abdominal discomfort [None]

NARRATIVE: CASE EVENT DATE: 20140912
